FAERS Safety Report 7780312-4 (Version None)
Quarter: 2011Q3

REPORT INFORMATION
  Report Type: 
  Country: None (occurrence: None)
  Receive Date: 20110927
  Receipt Date: 20110701
  Transmission Date: 20111222
  Serious: No
  Sender: FDA-Public Use
  Company Number: US-ASTRAZENECA-2011SE40104

PATIENT
  Age: 56 Year
  Sex: Male

DRUGS (2)
  1. DEPAKOTE [Concomitant]
  2. SEROQUEL [Suspect]
     Indication: AFFECTIVE DISORDER
     Route: 048

REACTIONS (1)
  - FEELING ABNORMAL [None]
